FAERS Safety Report 10548683 (Version 2)
Quarter: 2014Q4

REPORT INFORMATION
  Report Type: Spontaneous
  Country: US (occurrence: US)
  Receive Date: 20141028
  Receipt Date: 20141102
  Transmission Date: 20150529
  Serious: Yes (Death, Hospitalization, Other)
  Sender: FDA-Public Use
  Company Number: US-B.I. PHARMACEUTICALS,INC./RIDGEFIELD-2014-BI-51447BP

PATIENT
  Age: 65 Year
  Sex: Male
  Weight: 68.04 kg

DRUGS (6)
  1. NIACIN. [Concomitant]
     Active Substance: NIACIN
     Indication: BLOOD CHOLESTEROL INCREASED
     Route: 048
  2. PROVENTIL [Concomitant]
     Active Substance: ALBUTEROL
     Indication: CHRONIC OBSTRUCTIVE PULMONARY DISEASE
     Route: 055
  3. LISINOPRIL. [Concomitant]
     Active Substance: LISINOPRIL
     Indication: ARRHYTHMIA
     Route: 048
     Dates: start: 2007, end: 20130116
  4. ALBUTEROL. [Concomitant]
     Active Substance: ALBUTEROL
     Indication: CHRONIC OBSTRUCTIVE PULMONARY DISEASE
     Route: 055
  5. SPIRIVA [Suspect]
     Active Substance: TIOTROPIUM BROMIDE MONOHYDRATE
     Indication: CHRONIC OBSTRUCTIVE PULMONARY DISEASE
     Dosage: 18 MCG
     Route: 055
     Dates: start: 2011, end: 20130116
  6. SIMVASTATIN. [Concomitant]
     Active Substance: SIMVASTATIN
     Indication: BLOOD CHOLESTEROL INCREASED
     Dosage: 80 MG
     Route: 048
     Dates: start: 2007, end: 20130116

REACTIONS (3)
  - Cerebrovascular accident [Fatal]
  - Myocardial infarction [Fatal]
  - Carotid artery occlusion [Unknown]

NARRATIVE: CASE EVENT DATE: 20130116
